FAERS Safety Report 7444384-9 (Version None)
Quarter: 2011Q2

REPORT INFORMATION
  Report Type: 
  Country: None (occurrence: None)
  Receive Date: 20110427
  Receipt Date: 20110427
  Transmission Date: 20111010
  Serious: No
  Sender: FDA-Public Use
  Company Number: None

PATIENT
  Sex: Female

DRUGS (1)
  1. COPAXONE [Suspect]
     Indication: MULTIPLE SCLEROSIS
     Dosage: 20MG QD SUBCUTANEOUSLY
     Route: 058
     Dates: start: 20070817, end: 20110315

REACTIONS (7)
  - DYSPNOEA [None]
  - MEDICATION ERROR [None]
  - HEART RATE INCREASED [None]
  - FLUSHING [None]
  - ARTHRALGIA [None]
  - FEELING HOT [None]
  - INCORRECT ROUTE OF DRUG ADMINISTRATION [None]
